FAERS Safety Report 14252065 (Version 3)
Quarter: 2018Q1

REPORT INFORMATION
  Report Type: Report from Study
  Country: US (occurrence: US)
  Receive Date: 20171205
  Receipt Date: 20180305
  Transmission Date: 20180508
  Serious: Yes (Other)
  Sender: FDA-Public Use
  Company Number: US-ALEXION PHARMACEUTICALS INC.-A201708694

PATIENT
  Sex: Female

DRUGS (5)
  1. SOLIRIS [Suspect]
     Active Substance: ECULIZUMAB
     Dosage: UNK
     Route: 042
  2. SOLIRIS [Suspect]
     Active Substance: ECULIZUMAB
     Dosage: 900 MG, UNK
     Route: 042
  3. SOLIRIS [Suspect]
     Active Substance: ECULIZUMAB
     Dosage: 1200 MG, Q2W
     Route: 042
  4. SOLIRIS [Suspect]
     Active Substance: ECULIZUMAB
     Dosage: 1200 MG, UNK
     Route: 042
  5. SOLIRIS [Suspect]
     Active Substance: ECULIZUMAB
     Indication: PAROXYSMAL NOCTURNAL HAEMOGLOBINURIA
     Dosage: 1200 MG, Q2W
     Route: 042

REACTIONS (7)
  - Arthralgia [Not Recovered/Not Resolved]
  - Haemolysis [Not Recovered/Not Resolved]
  - Maternal exposure during breast feeding [Not Recovered/Not Resolved]
  - Insomnia [Not Recovered/Not Resolved]
  - Pregnancy [Recovered/Resolved]
  - Haemoglobinuria [Not Recovered/Not Resolved]
  - Inappropriate schedule of drug administration [Not Recovered/Not Resolved]

NARRATIVE: CASE EVENT DATE: 20180212
